FAERS Safety Report 10417296 (Version 1)
Quarter: 2014Q3

REPORT INFORMATION
  Report Type: Spontaneous
  Country: US (occurrence: US)
  Receive Date: 20140828
  Receipt Date: 20140828
  Transmission Date: 20150326
  Serious: No
  Sender: FDA-Public Use
  Company Number: US-ENDO PHARMACEUTICALS INC.-PRED20130073

PATIENT
  Sex: Female

DRUGS (1)
  1. PREDNISONE TABLETS [Suspect]
     Active Substance: PREDNISONE
     Indication: PULMONARY MASS
     Dosage: 5 TO 80 MG
     Route: 048
     Dates: start: 2011

REACTIONS (3)
  - Lung infection [Recovered/Resolved]
  - Muscle atrophy [Unknown]
  - Enuresis [Unknown]
